FAERS Safety Report 14753505 (Version 4)
Quarter: 2018Q4

REPORT INFORMATION
  Report Type: Report from Study
  Country: US (occurrence: US)
  Receive Date: 20180412
  Receipt Date: 20181022
  Transmission Date: 20190204
  Serious: Yes (Other)
  Sender: FDA-Public Use
  Company Number: PHEH2018US012716

PATIENT
  Age: 48 Year
  Sex: Female

DRUGS (4)
  1. GILENYA [Suspect]
     Active Substance: FINGOLIMOD HYDROCHLORIDE
     Indication: MULTIPLE SCLEROSIS
     Dosage: 0.5 MG, QD
     Route: 048
     Dates: start: 20161128
  2. GILENYA [Suspect]
     Active Substance: FINGOLIMOD HYDROCHLORIDE
     Dosage: 0.5 MG, QD
     Route: 048
     Dates: start: 20161229
  3. GABAPENTIN. [Concomitant]
     Active Substance: GABAPENTIN
     Indication: PARAESTHESIA
     Dosage: 300 MG, BID
     Route: 048
     Dates: start: 201611
  4. PREGABALIN. [Concomitant]
     Active Substance: PREGABALIN
     Indication: PARAESTHESIA
     Dosage: 50 MG, BID
     Route: 048
     Dates: start: 201611, end: 201701

REACTIONS (11)
  - Eye disorder [Not Recovered/Not Resolved]
  - Paraesthesia [Unknown]
  - Multiple sclerosis [Unknown]
  - Sinusitis [Unknown]
  - Blindness transient [Recovering/Resolving]
  - Vision blurred [Recovered/Resolved]
  - Tunnel vision [Recovered/Resolved]
  - Eye haemangioma [Unknown]
  - Visual impairment [Not Recovered/Not Resolved]
  - Photophobia [Not Recovered/Not Resolved]
  - Nasopharyngitis [Recovering/Resolving]

NARRATIVE: CASE EVENT DATE: 201612
